FAERS Safety Report 18197712 (Version 1)
Quarter: 2020Q3

REPORT INFORMATION
  Report Type: Spontaneous
  Country: US (occurrence: US)
  Receive Date: 20200826
  Receipt Date: 20200826
  Transmission Date: 20201103
  Serious: No
  Sender: FDA-Public Use
  Company Number: None

PATIENT
  Age: 79 Year
  Sex: Female
  Weight: 64.7 kg

DRUGS (21)
  1. ASPIRIN ADULT LOW DOSE [Concomitant]
     Active Substance: ASPIRIN
  2. CALCIUM CARBONATE ANTACID [Concomitant]
  3. BIOTIN 5000 [Concomitant]
  4. ATORVASTATIN CALCIUM. [Concomitant]
     Active Substance: ATORVASTATIN CALCIUM
  5. IPRATROPIUM?ALBUTEROL [Concomitant]
     Active Substance: ALBUTEROL\IPRATROPIUM
  6. GLIMEPIRIDE. [Concomitant]
     Active Substance: GLIMEPIRIDE
  7. METFORMIN HCL [Concomitant]
     Active Substance: METFORMIN HYDROCHLORIDE
  8. FASLODEX [Concomitant]
     Active Substance: FULVESTRANT
  9. LORAZEPAM. [Concomitant]
     Active Substance: LORAZEPAM
  10. XGEVA [Concomitant]
     Active Substance: DENOSUMAB
  11. CAPECITABINE. [Suspect]
     Active Substance: CAPECITABINE
     Indication: BREAST CANCER
     Route: 048
     Dates: start: 20200724, end: 20200826
  12. VITAMIN B12 [Concomitant]
     Active Substance: CYANOCOBALAMIN
  13. LETROZOLE. [Concomitant]
     Active Substance: LETROZOLE
  14. LISINOPRIL. [Concomitant]
     Active Substance: LISINOPRIL
  15. COENZYME Q?10 [Concomitant]
  16. VITAMIN D3 [Concomitant]
     Active Substance: CHOLECALCIFEROL
  17. FUROSEMIDE. [Concomitant]
     Active Substance: FUROSEMIDE
  18. MULTI FOR HER 50+ [Concomitant]
  19. AMOXICILLIN. [Concomitant]
     Active Substance: AMOXICILLIN
  20. DILTIAZEM HCL ER BEADS [Concomitant]
  21. HYDRALAZINE HCL [Concomitant]
     Active Substance: HYDRALAZINE HYDROCHLORIDE

REACTIONS (1)
  - Fatigue [None]

NARRATIVE: CASE EVENT DATE: 20200826
